FAERS Safety Report 9019573 (Version 1)
Quarter: 2013Q1

REPORT INFORMATION
  Report Type: Spontaneous
  Country: US (occurrence: US)
  Receive Date: 20130118
  Receipt Date: 20130118
  Transmission Date: 20140127
  Serious: No
  Sender: FDA-Public Use
  Company Number: US-SANOFI-AVENTIS-2012SA043895

PATIENT
  Age: 62 Year
  Sex: Female
  Weight: 118 kg

DRUGS (2)
  1. LASIX [Suspect]
     Route: 048
  2. LASIX [Suspect]
     Route: 048

REACTIONS (2)
  - Oedema [Unknown]
  - Renal function test abnormal [Unknown]
